FAERS Safety Report 15698573 (Version 2)
Quarter: 2018Q4

REPORT INFORMATION
  Report Type: Spontaneous
  Country: LY (occurrence: LY)
  Receive Date: 20181207
  Receipt Date: 20181227
  Transmission Date: 20190205
  Serious: Yes (Death, Hospitalization, Other)
  Sender: FDA-Public Use
  Company Number: LY-TAKEDA-2018MPI016755

PATIENT
  Age: 56 Year
  Sex: Female

DRUGS (1)
  1. VELCADE [Suspect]
     Active Substance: BORTEZOMIB
     Indication: PLASMA CELL MYELOMA
     Dosage: UNK
     Route: 065

REACTIONS (5)
  - Hypoalbuminaemia [Fatal]
  - Enteritis [Fatal]
  - Colitis [Fatal]
  - Diarrhoea [Fatal]
  - Hypokalaemia [Fatal]
